FAERS Safety Report 5880219-3 (Version None)
Quarter: 2008Q3

REPORT INFORMATION
  Report Type: 
  Country: None (occurrence: None)
  Receive Date: 20080910
  Receipt Date: 20080910
  Transmission Date: 20090109
  Serious: Yes (Life-Threatening, Other)
  Sender: FDA-Public Use
  Company Number: None

PATIENT
  Age: 51 Year
  Sex: Female
  Weight: 52.1637 kg

DRUGS (1)
  1. LOPRESSOR [Suspect]
     Indication: SUPRAVENTRICULAR TACHYCARDIA
     Dosage: 5MG  1  IV BOLUS
     Route: 040
     Dates: start: 20080122, end: 20080122

REACTIONS (1)
  - CARDIO-RESPIRATORY ARREST [None]
